FAERS Safety Report 18259546 (Version 2)
Quarter: 2021Q4

REPORT INFORMATION
  Report Type: Report from Study
  Country: CA (occurrence: CA)
  Receive Date: 20200911
  Receipt Date: 20211102
  Transmission Date: 20220304
  Serious: Yes (Hospitalization)
  Sender: FDA-Public Use
  Company Number: CA-NOVARTISPH-NVSC2020CA248367

PATIENT
  Age: 66 Year
  Sex: Male

DRUGS (2)
  1. MAYZENT [Suspect]
     Active Substance: SIPONIMOD
     Indication: Secondary progressive multiple sclerosis
     Dosage: UNK
     Route: 048
     Dates: start: 20200624, end: 20200824
  2. MAYZENT [Suspect]
     Active Substance: SIPONIMOD
     Dosage: UNK
     Route: 048
     Dates: end: 20211001

REACTIONS (2)
  - Cystitis [Recovering/Resolving]
  - Illness [Unknown]

NARRATIVE: CASE EVENT DATE: 20200801
